FAERS Safety Report 10791433 (Version 1)
Quarter: 2015Q1

REPORT INFORMATION
  Report Type: Spontaneous
  Country: US (occurrence: US)
  Receive Date: 20150213
  Receipt Date: 20150213
  Transmission Date: 20150721
  Serious: Yes (Hospitalization)
  Sender: FDA-Public Use
  Company Number: US-DRREDDYS-USA/USA/15/0045974

PATIENT
  Age: 16 Year
  Sex: Female

DRUGS (6)
  1. ELETRIPTAN [Suspect]
     Active Substance: ELETRIPTAN
     Indication: MIGRAINE
     Route: 065
  2. LITHIUM [Concomitant]
     Active Substance: LITHIUM CARBONATE
     Indication: AFFECTIVE DISORDER
     Route: 065
  3. ARIPIPRAZOLE. [Concomitant]
     Active Substance: ARIPIPRAZOLE
     Indication: AFFECTIVE DISORDER
     Route: 065
  4. SERTRALINE HYDROCHLORIDE. [Suspect]
     Active Substance: SERTRALINE HYDROCHLORIDE
     Indication: AFFECTIVE DISORDER
     Route: 065
  5. METHYLPHENIDATE [Suspect]
     Active Substance: METHYLPHENIDATE
     Indication: ATTENTION DEFICIT/HYPERACTIVITY DISORDER
     Route: 065
  6. METFORMIN [Concomitant]
     Active Substance: METFORMIN HYDROCHLORIDE
     Indication: HORMONE LEVEL ABNORMAL
     Route: 065

REACTIONS (2)
  - Reversible cerebral vasoconstriction syndrome [Recovered/Resolved]
  - Subarachnoid haemorrhage [Recovered/Resolved]
